FAERS Safety Report 8371123-X (Version None)
Quarter: 2012Q2

REPORT INFORMATION
  Report Type: 
  Country: None (occurrence: None)
  Receive Date: 20120518
  Receipt Date: 20120510
  Transmission Date: 20120825
  Serious: Yes (Hospitalization)
  Sender: FDA-Public Use
  Company Number: IT-BAYER-2012-046049

PATIENT
  Age: 38 Year
  Sex: Female

DRUGS (1)
  1. YASMIN [Suspect]
     Indication: OVARIAN CYST
     Dosage: DAILY DOSE 1 DF
     Route: 048
     Dates: start: 19980101, end: 20120425

REACTIONS (5)
  - NAUSEA [None]
  - PHOTOPHOBIA [None]
  - VISUAL IMPAIRMENT [None]
  - HEADACHE [None]
  - PHONOPHOBIA [None]
